FAERS Safety Report 12069744 (Version 1)
Quarter: 2016Q1

REPORT INFORMATION
  Report Type: Spontaneous
  Country: IT (occurrence: IT)
  Receive Date: 20160211
  Receipt Date: 20160211
  Transmission Date: 20160526
  Serious: Yes (Death)
  Sender: FDA-Public Use
  Company Number: IT-HOSPIRA-3166604

PATIENT
  Age: 4 Year
  Sex: Male

DRUGS (3)
  1. BETAMETHASONE. [Concomitant]
     Active Substance: BETAMETHASONE
     Indication: BRONCHITIS
     Dosage: VIAL
  2. CEFTRIAXONE SODIUM. [Suspect]
     Active Substance: CEFTRIAXONE SODIUM
     Indication: BRONCHITIS
     Dosage: ABOUT THREE QUARTERS OF THE VIAL
  3. SALBUTAMOL [Concomitant]
     Active Substance: ALBUTEROL
     Indication: BRONCHITIS
     Dosage: DROP CONTAINS 187.5 MCG OF SALBUTAMOL

REACTIONS (3)
  - Anaphylactic shock [Fatal]
  - Cardiac arrest [Fatal]
  - Cardiopulmonary failure [Fatal]
